FAERS Safety Report 6479606-4 (Version None)
Quarter: 2009Q4

REPORT INFORMATION
  Report Type: 
  Country: None (occurrence: None)
  Receive Date: 20091208
  Receipt Date: 20091126
  Transmission Date: 20100525
  Serious: Yes (Hospitalization, Other)
  Sender: FDA-Public Use
  Company Number: CA-JNJFOC-20091200218

PATIENT
  Sex: Female
  Weight: 35.8 kg

DRUGS (7)
  1. REMICADE [Suspect]
     Dosage: FREQUENCY ^X2^, ADMINISTERED FROM 11:10 TO 13:10
     Route: 042
  2. REMICADE [Suspect]
     Indication: DRUG USE FOR UNKNOWN INDICATION
     Dosage: TOTAL OF 8 DOSES ADMINISTERED
     Route: 042
  3. H1N1 VACCINE [Suspect]
     Indication: PROPHYLAXIS
  4. FLAGYL [Suspect]
     Indication: ABSCESS
  5. CIPROFLOXACIN [Suspect]
     Indication: ABSCESS
  6. SOLU-CORTEF [Concomitant]
     Indication: PREMEDICATION
     Dosage: ADMINISTERED AT 11:05
     Route: 042
  7. BENADRYL [Concomitant]
     Indication: PREMEDICATION
     Dosage: ADMINISTERED AT 11:00
     Route: 042

REACTIONS (8)
  - ABSCESS [None]
  - BLOOD IRON DECREASED [None]
  - CANDIDIASIS [None]
  - CHEST PAIN [None]
  - DIARRHOEA HAEMORRHAGIC [None]
  - NAUSEA [None]
  - PYREXIA [None]
  - VOMITING [None]
